FAERS Safety Report 12651445 (Version 1)
Quarter: 2016Q3

REPORT INFORMATION
  Report Type: Spontaneous
  Country: US (occurrence: None)
  Receive Date: 20160812
  Receipt Date: 20160812
  Transmission Date: 20161109
  Serious: Yes (Hospitalization)
  Sender: FDA-Public Use
  Company Number: None

PATIENT
  Age: 3 Year
  Sex: Female
  Weight: 15 kg

DRUGS (4)
  1. VINCRISTINE SULFATE. [Suspect]
     Active Substance: VINCRISTINE SULFATE
     Dates: end: 20160810
  2. ETOPOSIDE (VP-16) [Suspect]
     Active Substance: ETOPOSIDE
     Dates: end: 20160731
  3. CYCLOPHOSPHAMIDE. [Suspect]
     Active Substance: CYCLOPHOSPHAMIDE
     Dates: end: 20160731
  4. ONCASPAR [Suspect]
     Active Substance: PEGASPARGASE
     Dates: end: 20160810

REACTIONS (14)
  - Pyrexia [None]
  - Pseudomonal bacteraemia [None]
  - Ascites [None]
  - Hypoalbuminaemia [None]
  - Skin lesion [None]
  - Erythema [None]
  - Respiratory distress [None]
  - Blood culture positive [None]
  - Vomiting [None]
  - Neutropenia [None]
  - Diarrhoea [None]
  - Proctalgia [None]
  - Decreased appetite [None]
  - Flatulence [None]

NARRATIVE: CASE EVENT DATE: 20160807
